FAERS Safety Report 4532707-X (Version None)
Quarter: 2004Q4

REPORT INFORMATION
  Report Type: 
  Country: None (occurrence: None)
  Receive Date: 20041221
  Receipt Date: 20041209
  Transmission Date: 20050328
  Serious: Yes (Death)
  Sender: FDA-Public Use
  Company Number: CA-JNJFOC-20041202762

PATIENT
  Sex: Male
  Weight: 90.8 kg

DRUGS (9)
  1. REMICADE [Suspect]
  2. REMICADE [Suspect]
     Indication: RHEUMATOID ARTHRITIS
  3. ANTICOAGULANTS [Concomitant]
  4. METHOTREXATE [Concomitant]
     Indication: RHEUMATOID ARTHRITIS
     Route: 049
  5. PLAQUENIL [Concomitant]
     Indication: RHEUMATOID ARTHRITIS
     Route: 049
  6. PREDNISONE [Concomitant]
     Indication: RHEUMATOID ARTHRITIS
     Route: 049
  7. LISINOPRIL [Concomitant]
  8. NU-TRIAZIDE [Concomitant]
  9. NU-TRIAZIDE [Concomitant]

REACTIONS (2)
  - ANEURYSMECTOMY [None]
  - DEATH [None]
